FAERS Safety Report 18979728 (Version 1)
Quarter: 2021Q1

REPORT INFORMATION
  Report Type: Spontaneous
  Country: ES (occurrence: ES)
  Receive Date: 20210308
  Receipt Date: 20210308
  Transmission Date: 20210420
  Serious: Yes (Hospitalization, Other)
  Sender: FDA-Public Use
  Company Number: ES-AUROBINDO-AUR-APL-2019-092972

PATIENT
  Age: 65 Year
  Sex: Female
  Weight: 70 kg

DRUGS (9)
  1. MIDAZOLAM. [Concomitant]
     Active Substance: MIDAZOLAM
     Indication: ANAESTHESIA
     Dosage: 3 MILLIGRAM
     Route: 065
  2. AMOXICILLIN;CLAVULANIC ACID [Suspect]
     Active Substance: AMOXICILLIN\CLAVULANIC ACID
     Indication: PROPHYLAXIS
     Dosage: 2 GRAM
     Route: 065
  3. LOSARTAN. [Suspect]
     Active Substance: LOSARTAN
     Indication: HYPERTENSION
     Dosage: UNK
     Route: 065
  4. SIMVASTATIN. [Concomitant]
     Active Substance: SIMVASTATIN
     Indication: PRODUCT USED FOR UNKNOWN INDICATION
     Dosage: UNK
     Route: 065
  5. ATROPINE. [Concomitant]
     Active Substance: ATROPINE
     Indication: ANAESTHESIA
     Dosage: 0.7 MILLIGRAM
     Route: 065
  6. PROPOFOL. [Concomitant]
     Active Substance: PROPOFOL
     Indication: ANAESTHESIA
     Dosage: 140 MILLIGRAM
     Route: 065
  7. CISATRACURIUM. [Concomitant]
     Active Substance: CISATRACURIUM
     Indication: ANAESTHESIA
     Dosage: 10 MILLIGRAM
     Route: 016
  8. BISOPROLOL [Suspect]
     Active Substance: BISOPROLOL
     Indication: HYPERTENSION
     Dosage: UNK
     Route: 065
  9. FENTANYL. [Concomitant]
     Active Substance: FENTANYL
     Indication: ANAESTHESIA
     Dosage: 150 MICROGRAM
     Route: 065

REACTIONS (1)
  - Anaphylactic reaction [Recovered/Resolved]
